FAERS Safety Report 15281954 (Version 1)
Quarter: 2018Q3

REPORT INFORMATION
  Report Type: Spontaneous
  Country: US (occurrence: US)
  Receive Date: 20180815
  Receipt Date: 20180815
  Transmission Date: 20181010
  Serious: No
  Sender: FDA-Public Use
  Company Number: US-BIOGEN-2013BI063786

PATIENT
  Age: 50 Year
  Sex: Female

DRUGS (8)
  1. TECFIDERA [Suspect]
     Active Substance: DIMETHYL FUMARATE
     Indication: MULTIPLE SCLEROSIS
     Route: 048
     Dates: start: 20130614, end: 20130620
  2. TECFIDERA [Suspect]
     Active Substance: DIMETHYL FUMARATE
     Route: 048
     Dates: start: 20130621, end: 20130627
  3. TECFIDERA [Suspect]
     Active Substance: DIMETHYL FUMARATE
     Route: 048
     Dates: start: 20130705
  4. TYSABRI [Suspect]
     Active Substance: NATALIZUMAB
     Indication: MULTIPLE SCLEROSIS
     Dosage: INFUSED OVER 1 HOUR
     Route: 042
     Dates: start: 20080104, end: 20130523
  5. TYSABRI [Suspect]
     Active Substance: NATALIZUMAB
     Dosage: INFUSED OVER 1 HOUR
     Route: 065
     Dates: start: 20080104, end: 20130709
  6. TYSABRI [Suspect]
     Active Substance: NATALIZUMAB
     Dosage: INFUSED OVER 1 HOUR
     Route: 065
     Dates: start: 20111025, end: 20180511
  7. TECFIDERA [Suspect]
     Active Substance: DIMETHYL FUMARATE
     Route: 065
     Dates: start: 20130524, end: 20130724
  8. TECFIDERA [Suspect]
     Active Substance: DIMETHYL FUMARATE
     Route: 048
     Dates: start: 20130628, end: 20130704

REACTIONS (11)
  - Diarrhoea [Recovered/Resolved]
  - Muscle rupture [Recovered/Resolved]
  - Fatigue [Not Recovered/Not Resolved]
  - Feeling abnormal [Not Recovered/Not Resolved]
  - Nausea [Recovered/Resolved]
  - Tremor [Not Recovered/Not Resolved]
  - Underdose [Recovered/Resolved]
  - Drug effect incomplete [Not Recovered/Not Resolved]
  - Constipation [Recovered/Resolved]
  - Abdominal pain upper [Recovered/Resolved]
  - Dyspepsia [Recovered/Resolved]

NARRATIVE: CASE EVENT DATE: 201305
